FAERS Safety Report 7114095-8 (Version None)
Quarter: 2010Q4

REPORT INFORMATION
  Report Type: 
  Country: None (occurrence: None)
  Receive Date: 20101119
  Receipt Date: 20101112
  Transmission Date: 20110411
  Serious: Yes (Disabling, Other)
  Sender: FDA-Public Use
  Company Number: US-US-EMD SERONO, INC.-7026612

PATIENT
  Sex: Female
  Weight: 73 kg

DRUGS (9)
  1. REBIF [Suspect]
     Indication: MULTIPLE SCLEROSIS
     Route: 058
     Dates: start: 20100624, end: 20100801
  2. REBIF [Suspect]
     Route: 058
     Dates: start: 20100801
  3. TYLENOL (CAPLET) [Concomitant]
     Indication: PREMEDICATION
  4. FLEXERIL [Concomitant]
  5. NUVIGIL [Concomitant]
  6. GABAPENTIN [Concomitant]
  7. MIRAPEX [Concomitant]
  8. CLONAZEPAM [Concomitant]
  9. BENICAR [Concomitant]

REACTIONS (3)
  - DIABETES MELLITUS [None]
  - INFLUENZA LIKE ILLNESS [None]
  - MULTIPLE SCLEROSIS RELAPSE [None]
